FAERS Safety Report 13840879 (Version 6)
Quarter: 2017Q4

REPORT INFORMATION
  Report Type: Spontaneous
  Country: JP (occurrence: JP)
  Receive Date: 20170807
  Receipt Date: 20171221
  Transmission Date: 20180320
  Serious: Yes (Death, Life-Threatening, Hospitalization, Disabling, Other)
  Sender: FDA-Public Use
  Company Number: JP-PFIZER INC-2017009535

PATIENT
  Age: 87 Year
  Sex: Male
  Weight: 40.5 kg

DRUGS (16)
  1. FEBURIC [Concomitant]
     Active Substance: FEBUXOSTAT
     Dosage: 10 MG, 1X/DAY
     Route: 048
     Dates: start: 201510, end: 20161217
  2. ELIQUIS [Suspect]
     Active Substance: APIXABAN
     Indication: CEREBROVASCULAR ACCIDENT PROPHYLAXIS
     Dosage: 2.5 MG, 2X/DAY
     Route: 048
     Dates: start: 20161213, end: 20161218
  3. DIPRIVAN [Suspect]
     Active Substance: PROPOFOL
     Indication: PROPHYLAXIS
     Dosage: UNK
  4. TAKEPRON [Concomitant]
     Active Substance: LANSOPRAZOLE
     Dosage: 15 MG, 1X/DAY
     Route: 048
     Dates: start: 201510, end: 20161217
  5. TAKEPRON [Concomitant]
     Active Substance: LANSOPRAZOLE
     Dosage: UNK UNK, 1X/DAY
     Route: 048
     Dates: start: 20161222
  6. MEROPEN [Suspect]
     Active Substance: MEROPENEM
     Dosage: 3 G, 1X/DAY
     Route: 042
     Dates: start: 20161222, end: 20161224
  7. MAINTATE [Concomitant]
     Active Substance: BISOPROLOL FUMARATE
     Indication: DYSPNOEA
     Dosage: 2.5 MG, 1X/DAY
     Route: 048
     Dates: start: 20150313, end: 20161217
  8. GLUFAST [Concomitant]
     Active Substance: MITIGLINIDE
     Indication: GLYCOSYLATED HAEMOGLOBIN INCREASED
     Dosage: 10 MG, 1X/DAY
     Route: 048
     Dates: start: 20150909, end: 20161217
  9. TAKEPRON [Concomitant]
     Active Substance: LANSOPRAZOLE
     Dosage: 15 MG, 1X/DAY
     Route: 048
     Dates: start: 20161219
  10. DIPRIVAN [Suspect]
     Active Substance: PROPOFOL
     Indication: SEDATION
     Dosage: UNK
     Route: 042
  11. DIPRIVAN [Suspect]
     Active Substance: PROPOFOL
     Dosage: UNK
     Dates: end: 20161221
  12. BEPRICOR [Concomitant]
     Active Substance: BEPRIDIL
     Dosage: 50 MG, 2X/DAY
     Route: 065
     Dates: start: 20161220, end: 20170111
  13. BEPRICOR [Concomitant]
     Active Substance: BEPRIDIL
     Indication: ARRHYTHMIA
     Dosage: 50 MG, 2X/DAY
     Route: 065
     Dates: start: 20161213, end: 20161217
  14. TAKEPRON [Concomitant]
     Active Substance: LANSOPRAZOLE
     Dosage: 1.5 MG, 1X/DAY
     Route: 048
     Dates: start: 20161219
  15. MAINTATE [Concomitant]
     Active Substance: BISOPROLOL FUMARATE
     Indication: CHEST DISCOMFORT
     Dosage: 2.5 MG, 1X/DAY
     Route: 048
     Dates: start: 20161220, end: 20170111
  16. BEPRICOR [Concomitant]
     Active Substance: BEPRIDIL
     Dosage: 50 MG, 2X/DAY
     Route: 065
     Dates: start: 20161219, end: 20161219

REACTIONS (14)
  - Platelet count decreased [Not Recovered/Not Resolved]
  - Mycobacterium tuberculosis complex test positive [Unknown]
  - Blood pressure decreased [Recovered/Resolved]
  - Endotracheal intubation [Unknown]
  - Aphonia [Not Recovered/Not Resolved]
  - Pneumonia aspiration [Recovered/Resolved]
  - Pyrexia [Recovered/Resolved]
  - Drug eruption [Recovered/Resolved]
  - Pulmonary alveolar haemorrhage [Fatal]
  - Cardiac failure [Not Recovered/Not Resolved]
  - Dysphagia [Not Recovered/Not Resolved]
  - Depressed level of consciousness [Recovered/Resolved]
  - Pneumonia [Recovered/Resolved]
  - Atrial fibrillation [Not Recovered/Not Resolved]

NARRATIVE: CASE EVENT DATE: 20161213
